FAERS Safety Report 7035227-6 (Version None)
Quarter: 2010Q4

REPORT INFORMATION
  Report Type: 
  Country: None (occurrence: None)
  Receive Date: 20101007
  Receipt Date: 20101007
  Transmission Date: 20110411
  Serious: Yes (Life-Threatening, Hospitalization)
  Sender: FDA-Public Use
  Company Number: None

PATIENT
  Age: 23 Year
  Sex: Male
  Weight: 61.2356 kg

DRUGS (1)
  1. HYDROXYUREA [Suspect]
     Indication: SICKLE CELL ANAEMIA
     Dosage: 500 MILLIGRAM ONCE DAILY PO
     Route: 048
     Dates: start: 20000302, end: 20100929

REACTIONS (5)
  - ASTHENIA [None]
  - CARDIAC NEOPLASM UNSPECIFIED [None]
  - HEADACHE [None]
  - PARAESTHESIA [None]
  - THROMBOSIS [None]
